FAERS Safety Report 25968932 (Version 2)
Quarter: 2025Q4

REPORT INFORMATION
  Report Type: Spontaneous
  Country: JP (occurrence: JP)
  Receive Date: 20251028
  Receipt Date: 20251107
  Transmission Date: 20260117
  Serious: Yes (Hospitalization)
  Sender: SHIONOGI
  Company Number: JP-PMDA-i2510003640001

PATIENT
  Age: 77 Year
  Weight: 64 kg

DRUGS (3)
  1. CEFIDEROCOL [Suspect]
     Active Substance: CEFIDEROCOL
     Indication: Peritonitis
     Route: 042
     Dates: start: 20250819, end: 20250827
  2. VANCOMYCIN HYDROCHLORIDE [Suspect]
     Active Substance: VANCOMYCIN HYDROCHLORIDE
     Indication: Peritonitis
     Route: 042
     Dates: start: 20250812, end: 20250826
  3. CMZ [Concomitant]
     Indication: Product used for unknown indication
     Route: 042
     Dates: start: 20250814

REACTIONS (1)
  - Dermatitis contact [Recovering/Resolving]

NARRATIVE: CASE EVENT DATE: 20250826
